FAERS Safety Report 10020643 (Version 1)
Quarter: 2014Q1

REPORT INFORMATION
  Report Type: Report from Study
  Country: US (occurrence: US)
  Receive Date: 20140319
  Receipt Date: 20140319
  Transmission Date: 20141002
  Serious: Yes (Hospitalization)
  Sender: FDA-Public Use
  Company Number: US-BRISTOL-MYERS SQUIBB COMPANY-20417861

PATIENT
  Sex: 0

DRUGS (12)
  1. ARIPIPRAZOLE [Suspect]
     Dates: start: 20131126
  2. SIMVASTATIN [Concomitant]
  3. BUDESONIDE + FORMOTEROL FUMARATE [Concomitant]
  4. ALBUTEROL [Concomitant]
  5. TIOTROPIUM BROMIDE [Concomitant]
  6. GLIPIZIDE [Concomitant]
  7. METFORMIN HCL [Concomitant]
  8. FUROSEMIDE [Concomitant]
  9. TESTOSTERONE [Concomitant]
  10. OMEPRAZOLE [Concomitant]
  11. VITAMIN D3 [Concomitant]
  12. POTASSIUM [Concomitant]

REACTIONS (1)
  - Chronic obstructive pulmonary disease [Recovered/Resolved]
